FAERS Safety Report 6322054-8 (Version None)
Quarter: 2009Q3

REPORT INFORMATION
  Report Type: 
  Country: None (occurrence: None)
  Receive Date: 20090821
  Receipt Date: 20090821
  Transmission Date: 20100115
  Serious: No
  Sender: FDA-Public Use
  Company Number: None

PATIENT
  Sex: Female

DRUGS (1)
  1. FLOMAX [Suspect]
     Indication: URINARY TRACT OBSTRUCTION
     Dosage: 0.4MG QD PO
     Route: 048
     Dates: start: 20090811, end: 20090816

REACTIONS (1)
  - SINUS HEADACHE [None]
